FAERS Safety Report 5164873-X (Version None)
Quarter: 2006Q4

REPORT INFORMATION
  Report Type: 
  Country: None (occurrence: None)
  Receive Date: 20061205
  Receipt Date: 20060908
  Transmission Date: 20070319
  Serious: Yes (Hospitalization)
  Sender: FDA-Public Use
  Company Number: GR-ELI_LILLY_AND_COMPANY-GR200609002199

PATIENT
  Age: 75 Year
  Sex: Female

DRUGS (3)
  1. DULOXETINE HYDROCHLORIDE [Suspect]
     Indication: DEPRESSION
     Dosage: 60 MG, DAILY (1/D)
     Route: 048
     Dates: start: 20060701, end: 20060801
  2. ZOLOFT [Concomitant]
     Indication: DEPRESSION
     Dates: end: 20060901
  3. ZYBAN                                   /UNK/ [Concomitant]
     Indication: DEPRESSION
     Dates: end: 20060901

REACTIONS (2)
  - DEPRESSION [None]
  - SUICIDAL IDEATION [None]
